FAERS Safety Report 15551189 (Version 4)
Quarter: 2018Q4

REPORT INFORMATION
  Report Type: Spontaneous
  Country: CH (occurrence: CH)
  Receive Date: 20181025
  Receipt Date: 20181205
  Transmission Date: 20190205
  Serious: Yes (Hospitalization, Other)
  Sender: FDA-Public Use
  Company Number: CH-PFIZER INC-2018431903

PATIENT
  Age: 76 Year
  Sex: Male

DRUGS (9)
  1. TRIATEC (RAMIPRIL) [Suspect]
     Active Substance: RAMIPRIL
     Dosage: 5 MG, 1X/DAY
     Dates: start: 20180926
  2. DILATREND [Suspect]
     Active Substance: CARVEDILOL
     Dosage: 12.5 MG, DAILY (DURING THE HOSPITALIZATION THE DOSE IS REDUCED: 12.5 MG/DAY)
     Route: 065
  3. DILATREND [Suspect]
     Active Substance: CARVEDILOL
     Dosage: 18.75 MG, DAILY (1/2 -0-1-0 TABLETS OF 12.5 MG. IT IS NOT KNOWN HOW LONG THE PATIENT TOOK THE DRUG)
     Route: 048
     Dates: end: 20180823
  4. ASPIRIN CARDIO [Concomitant]
     Active Substance: ASPIRIN
     Dosage: 100 MG, 1X/DAY
     Route: 048
  5. ALDACTONE [Suspect]
     Active Substance: SPIRONOLACTONE
     Dosage: 25 MG, 1X/DAY
     Route: 048
     Dates: end: 20180823
  6. ATOZET [Concomitant]
     Active Substance: ATORVASTATIN CALCIUM\EZETIMIBE
     Dosage: 1 DF, 1X/DAY (DOSAGE: 10/20 MG X/DAY)
     Route: 048
  7. ZYLORIC [Concomitant]
     Active Substance: ALLOPURINOL
     Dosage: 200 MG, 1X/DAY
     Route: 048
     Dates: end: 20180823
  8. TRIATEC (RAMIPRIL) [Suspect]
     Active Substance: RAMIPRIL
     Dosage: 5 MG, 1X/DAY
     Route: 048
     Dates: end: 20180823
  9. PANTOZOL CONTROL [Concomitant]
     Dosage: 40 MG, 1X/DAY
     Route: 048

REACTIONS (5)
  - Hyperkalaemia [Recovered/Resolved]
  - Asthenia [Recovered/Resolved]
  - Acute kidney injury [Recovering/Resolving]
  - Metabolic acidosis [Recovering/Resolving]
  - Dyspnoea [Recovered/Resolved]

NARRATIVE: CASE EVENT DATE: 201808
